FAERS Safety Report 4783497-7 (Version None)
Quarter: 2005Q3

REPORT INFORMATION
  Report Type: 
  Country: None (occurrence: None)
  Receive Date: 20050914
  Receipt Date: 20050706
  Transmission Date: 20060218
  Serious: Yes (Other)
  Sender: FDA-Public Use
  Company Number: 163-20785-05070053

PATIENT

DRUGS (2)
  1. THALOMID [Suspect]
     Indication: ADENOCARCINOMA PANCREAS
     Dosage: SEE IMAGE
     Route: 048
     Dates: start: 20050201
  2. CPT-11 (INRINOTECAN) [Suspect]
     Indication: ADENOCARCINOMA PANCREAS
     Dosage: SEE IMAGE
     Route: 042
     Dates: start: 20050201

REACTIONS (8)
  - DIPLOPIA [None]
  - DIZZINESS [None]
  - FEBRILE NEUTROPENIA [None]
  - HAEMOGLOBIN DECREASED [None]
  - HYPERGLYCAEMIA [None]
  - HYPOKALAEMIA [None]
  - NEUTROPHIL COUNT DECREASED [None]
  - WHITE BLOOD CELL COUNT DECREASED [None]
